FAERS Safety Report 9013956 (Version 1)
Quarter: 2013Q1

REPORT INFORMATION
  Report Type: Spontaneous
  Country: US (occurrence: None)
  Receive Date: 20130109
  Receipt Date: 20130109
  Transmission Date: 20140127
  Serious: Yes (Death)
  Sender: FDA-Public Use
  Company Number: None

PATIENT
  Age: 82 Year
  Sex: Female

DRUGS (1)
  1. HUMIRA [Suspect]
     Dosage: 40MG; Q2WKS; SQ
     Route: 058
     Dates: start: 20110628, end: 20121101

REACTIONS (1)
  - Lung neoplasm malignant [None]
